FAERS Safety Report 8122347-8 (Version None)
Quarter: 2012Q1

REPORT INFORMATION
  Report Type: 
  Country: None (occurrence: None)
  Receive Date: 20120208
  Receipt Date: 20120206
  Transmission Date: 20120608
  Serious: Yes (Life-Threatening, Hospitalization, Other)
  Sender: FDA-Public Use
  Company Number: FR-BRISTOL-MYERS SQUIBB COMPANY-15594344

PATIENT
  Age: 89 Year
  Sex: Female

DRUGS (2)
  1. ASPIRIN [Suspect]
     Dates: end: 20110129
  2. COUMADIN [Suspect]
     Indication: ATRIAL FIBRILLATION
     Route: 048
     Dates: start: 20101101, end: 20110129

REACTIONS (4)
  - INTRA-ABDOMINAL HAEMATOMA [None]
  - MUSCLE HAEMORRHAGE [None]
  - ANAEMIA [None]
  - CARDIAC FAILURE [None]
